FAERS Safety Report 16883595 (Version 1)
Quarter: 2019Q4

REPORT INFORMATION
  Report Type: Report from Study
  Country: DE (occurrence: DE)
  Receive Date: 20191004
  Receipt Date: 20191004
  Transmission Date: 20200122
  Serious: Yes (Other)
  Sender: FDA-Public Use
  Company Number: DE-ROCHE-2079558

PATIENT
  Age: 79 Year
  Sex: Female
  Weight: 60 kg

DRUGS (2)
  1. PACLITAXEL. [Concomitant]
     Active Substance: PACLITAXEL
     Indication: BREAST CANCER
     Dosage: AND RECEIVED SUBSEQUENT DOSES AT 0 3/JUL/2018, 10/JUL/2018, 17/JUL/2018, 31/JUL/2018, 07/AUG/2018
     Route: 065
     Dates: start: 20120626
  2. BEVACIZUMAB. [Suspect]
     Active Substance: BEVACIZUMAB
     Indication: BREAST CANCER
     Route: 065
     Dates: start: 20120626, end: 20120807

REACTIONS (1)
  - Device related thrombosis [Recovering/Resolving]

NARRATIVE: CASE EVENT DATE: 20120817
